FAERS Safety Report 4636592-7 (Version None)
Quarter: 2005Q2

REPORT INFORMATION
  Report Type: 
  Country: None (occurrence: None)
  Receive Date: 20050414
  Receipt Date: 20050307
  Transmission Date: 20051028
  Serious: Yes (Death)
  Sender: FDA-Public Use
  Company Number: 2005-UK-00344UK

PATIENT
  Sex: Male

DRUGS (10)
  1. TIOTROPIUM (00015/0190/A) (TIOTROPIUM BROMIDE) (KAI) [Suspect]
     Dosage: 18 MCG (18 MCG) IH
     Route: 055
     Dates: start: 20030115
  2. PREDNISOLONE [Concomitant]
  3. UNIPHYLLIN CONTINUS (THEOPHYLLINE) (TA) [Concomitant]
  4. FUROSEMIDE (FUROSEMIDE) (TA) [Concomitant]
  5. ENSURE PLUS LIQUID FEED [Concomitant]
  6. RAMIPRIL (RAMIPRIL) (KA) [Concomitant]
  7. SALBUTAMOL (SALBUTAMOL) (LOH) [Concomitant]
  8. ALBUTEROL [Concomitant]
  9. BECLOMETASONE (BECLOMETASONE) (SEE TEXT) [Concomitant]
  10. WARFARIN SODIUM [Concomitant]

REACTIONS (1)
  - CHRONIC OBSTRUCTIVE PULMONARY DISEASE [None]
